FAERS Safety Report 7013454-1 (Version None)
Quarter: 2010Q3

REPORT INFORMATION
  Report Type: 
  Country: None (occurrence: None)
  Receive Date: 20100924
  Receipt Date: 20100913
  Transmission Date: 20110219
  Serious: Yes (Other)
  Sender: FDA-Public Use
  Company Number: US-PFIZER INC-2010116232

PATIENT
  Sex: Female
  Weight: 69.841 kg

DRUGS (4)
  1. LYRICA [Suspect]
     Indication: PAIN
     Dosage: 25 MG, 2X/DAY
     Route: 048
     Dates: start: 20100909, end: 20100912
  2. LYRICA [Suspect]
     Indication: NERVE STIMULATION TEST ABNORMAL
  3. LYRICA [Suspect]
     Indication: PAIN IN EXTREMITY
  4. INSULIN [Suspect]
     Dosage: UNK

REACTIONS (13)
  - CONFUSIONAL STATE [None]
  - DISTURBANCE IN ATTENTION [None]
  - DIZZINESS [None]
  - DRY MOUTH [None]
  - DYSPHAGIA [None]
  - FALL [None]
  - FEELING ABNORMAL [None]
  - FEELING DRUNK [None]
  - HANGOVER [None]
  - OEDEMA PERIPHERAL [None]
  - SWOLLEN TONGUE [None]
  - THINKING ABNORMAL [None]
  - VISION BLURRED [None]
